FAERS Safety Report 20125335 (Version 1)
Quarter: 2021Q4

REPORT INFORMATION
  Report Type: Spontaneous
  Country: FR (occurrence: FR)
  Receive Date: 20211129
  Receipt Date: 20211129
  Transmission Date: 20220303
  Serious: Yes (Hospitalization)
  Sender: FDA-Public Use
  Company Number: None

PATIENT
  Age: 64 Year
  Sex: Male
  Weight: 75 kg

DRUGS (5)
  1. REMICADE [Suspect]
     Active Substance: INFLIXIMAB
     Indication: Enterocolitis haemorrhagic
     Route: 042
     Dates: start: 201712, end: 202110
  2. HUMIRA [Suspect]
     Active Substance: ADALIMUMAB
     Route: 058
     Dates: start: 201207, end: 201712
  3. PENTASA [Suspect]
     Active Substance: MESALAMINE
     Route: 048
     Dates: start: 200808, end: 200812
  4. AZATHIOPRINE [Suspect]
     Active Substance: AZATHIOPRINE
     Route: 048
     Dates: start: 200812, end: 200903
  5. ENTOCORT [Suspect]
     Active Substance: BUDESONIDE
     Indication: Enterocolitis haemorrhagic
     Route: 048
     Dates: start: 200812

REACTIONS (1)
  - Nasal sinus cancer [Not Recovered/Not Resolved]

NARRATIVE: CASE EVENT DATE: 20210927
